FAERS Safety Report 25727741 (Version 1)
Quarter: 2025Q3

REPORT INFORMATION
  Report Type: Report from Study
  Country: US (occurrence: US)
  Receive Date: 20250826
  Receipt Date: 20250826
  Transmission Date: 20251020
  Serious: Yes (Death, Other)
  Sender: GILEAD
  Company Number: US-GILEAD-2025-0725871

PATIENT
  Age: 77 Year
  Sex: Male

DRUGS (7)
  1. BREXUCABTAGENE AUTOLEUCEL [Suspect]
     Active Substance: BREXUCABTAGENE AUTOLEUCEL
     Indication: Non-Hodgkin^s lymphoma
     Route: 042
  2. CYCLOPHOSPHAMIDE [Concomitant]
     Active Substance: CYCLOPHOSPHAMIDE
  3. FLUDARABINE [Concomitant]
     Active Substance: FLUDARABINE PHOSPHATE
  4. RITUXIMAB [Concomitant]
     Active Substance: RITUXIMAB
  5. EPIRUBICIN [Concomitant]
     Active Substance: EPIRUBICIN
  6. ONCOVIN [Concomitant]
     Active Substance: VINCRISTINE SULFATE
  7. PREDNISONE [Concomitant]
     Active Substance: PREDNISONE

REACTIONS (3)
  - Death [Fatal]
  - Leukaemia [Unknown]
  - Myelodysplastic syndrome [Unknown]
